FAERS Safety Report 10014767 (Version 2)
Quarter: 2014Q1

REPORT INFORMATION
  Report Type: Spontaneous
  Country: FR (occurrence: FR)
  Receive Date: 20140317
  Receipt Date: 20140317
  Transmission Date: 20141002
  Serious: Yes (Hospitalization, Other)
  Sender: FDA-Public Use
  Company Number: FR-009507513-2012SP023279

PATIENT
  Age: 63 Year
  Sex: Male
  Weight: 60 kg

DRUGS (4)
  1. VICTRELIS [Suspect]
     Indication: HEPATITIS C
     Dosage: 800 MG, TID
     Dates: start: 20110525
  2. VIRAFERONPEG [Suspect]
     Indication: HEPATITIS C
     Dosage: 100 ?G, QW
     Dates: start: 20110428
  3. REBETOL [Suspect]
     Indication: HEPATITIS C
     Dosage: 400 MG, QD
     Dates: start: 20110428
  4. XANAX [Concomitant]
     Indication: DEPRESSION
     Dosage: 1.5 MG, QD
     Dates: start: 20110721

REACTIONS (4)
  - Subileus [Recovering/Resolving]
  - Anaemia [Recovered/Resolved]
  - Depression [Recovered/Resolved]
  - Suicidal ideation [Recovered/Resolved]
